FAERS Safety Report 9844811 (Version 1)
Quarter: 2014Q1

REPORT INFORMATION
  Report Type: Spontaneous
  Country: US (occurrence: US)
  Receive Date: 20140127
  Receipt Date: 20140127
  Transmission Date: 20141002
  Serious: Yes (Hospitalization, Other)
  Sender: FDA-Public Use
  Company Number: US-SUN PHARMACEUTICAL INDUSTRIES LTD-2014SUN00081

PATIENT
  Sex: 0

DRUGS (2)
  1. BACTRIM TABLETS, USP 400 MG/ 80 MG [Suspect]
     Indication: INFECTED CYST
     Route: 065
  2. COPAXONE [Interacting]
     Indication: MULTIPLE SCLEROSIS
     Dosage: UNK
     Route: 058
     Dates: start: 20131023

REACTIONS (6)
  - Back pain [Recovered/Resolved]
  - Drug interaction [Recovered/Resolved]
  - Infected cyst [Recovered/Resolved]
  - Gastrointestinal pain [Recovered/Resolved]
  - Haemoglobin decreased [Unknown]
  - Headache [Recovered/Resolved]
